FAERS Safety Report 6746039-2 (Version None)
Quarter: 2010Q2

REPORT INFORMATION
  Report Type: 
  Country: None (occurrence: None)
  Receive Date: 20100528
  Receipt Date: 20100514
  Transmission Date: 20101027
  Serious: Yes (Other)
  Sender: FDA-Public Use
  Company Number: US-ELI_LILLY_AND_COMPANY-US201005004727

PATIENT
  Age: 45 Year
  Sex: Male

DRUGS (1)
  1. FORTEO [Suspect]
     Dates: end: 20100101

REACTIONS (1)
  - AMYOTROPHIC LATERAL SCLEROSIS [None]
